FAERS Safety Report 22222588 (Version 4)
Quarter: 2023Q2

REPORT INFORMATION
  Report Type: Spontaneous
  Country: US (occurrence: US)
  Receive Date: 20230418
  Receipt Date: 20230628
  Transmission Date: 20230721
  Serious: No
  Sender: FDA-Public Use
  Company Number: US-SA-SAC20230414001683

PATIENT
  Age: 57 Year
  Sex: Male

DRUGS (3)
  1. DUPIXENT [Suspect]
     Active Substance: DUPILUMAB
     Indication: Dermatitis allergic
     Dosage: UNK UNK, 1X
     Route: 058
  2. DUPIXENT [Suspect]
     Active Substance: DUPILUMAB
     Indication: Dermatitis atopic
     Dosage: 300 MG, QOW
     Route: 058
     Dates: start: 202304
  3. BACTRIM [Concomitant]
     Active Substance: SULFAMETHOXAZOLE\TRIMETHOPRIM
     Indication: Pneumocystis jirovecii pneumonia

REACTIONS (10)
  - Constipation [Unknown]
  - Flatulence [Unknown]
  - Visual impairment [Unknown]
  - Abdominal distension [Unknown]
  - Scratch [Unknown]
  - Vision blurred [Unknown]
  - Ear haemorrhage [Unknown]
  - Excessive eye blinking [Unknown]
  - Ear infection [Unknown]
  - Ear injury [Unknown]

NARRATIVE: CASE EVENT DATE: 20230101
